FAERS Safety Report 25897304 (Version 1)
Quarter: 2025Q4

REPORT INFORMATION
  Report Type: Spontaneous
  Country: EG (occurrence: EG)
  Receive Date: 20251008
  Receipt Date: 20251008
  Transmission Date: 20260118
  Serious: Yes (Hospitalization, Other)
  Sender: NOVO NORDISK
  Company Number: EG-NOVOPROD-1532591

PATIENT
  Sex: Male
  Weight: 59 kg

DRUGS (1)
  1. ACTRAPID [Suspect]
     Active Substance: INSULIN HUMAN
     Indication: Type 1 diabetes mellitus
     Dosage: 35 IU, QD (10U MORNING/ 15U AFTERNOON/ 10U EVENING, ALL BEFORE MEALS)

REACTIONS (2)
  - Diabetic gangrene [Recovered/Resolved with Sequelae]
  - Accident [Unknown]
